FAERS Safety Report 8031848-2 (Version None)
Quarter: 2012Q1

REPORT INFORMATION
  Report Type: 
  Country: None (occurrence: None)
  Receive Date: 20120109
  Receipt Date: 20120105
  Transmission Date: 20120608
  Serious: Yes (Hospitalization)
  Sender: FDA-Public Use
  Company Number: BR-ABBOTT-11P-020-0886789-00

PATIENT
  Sex: Female
  Weight: 56 kg

DRUGS (8)
  1. METICORTEN [Concomitant]
     Indication: CROHN'S DISEASE
  2. HUMIRA [Suspect]
     Indication: CROHN'S DISEASE
     Dosage: INDUCTION DOSE, ONCE
     Route: 058
     Dates: start: 20111209
  3. HUMIRA [Suspect]
     Dosage: INDUCTION DOSE, ONCE
     Route: 058
  4. LOSARTAN POTASSIUM [Concomitant]
     Indication: BLOOD PRESSURE
     Route: 048
  5. PANTOPRAZOLE [Concomitant]
     Indication: GASTRIC DISORDER
     Route: 048
  6. LEVOTHYROXINE SODIUM [Concomitant]
     Indication: THYROID DISORDER
     Route: 048
  7. GLIMEPIRIDE [Concomitant]
     Indication: BLOOD GLUCOSE
     Route: 048
  8. METICORTEN [Concomitant]
     Indication: SYSTEMIC LUPUS ERYTHEMATOSUS

REACTIONS (4)
  - FEELING ABNORMAL [None]
  - DIARRHOEA [None]
  - CROHN'S DISEASE [None]
  - ABDOMINAL PAIN [None]
